FAERS Safety Report 19790161 (Version 2)
Quarter: 2021Q4

REPORT INFORMATION
  Report Type: Spontaneous
  Country: CZ (occurrence: CZ)
  Receive Date: 20210905
  Receipt Date: 20211007
  Transmission Date: 20220303
  Serious: Yes (Hospitalization, Other)
  Sender: FDA-Public Use
  Company Number: CZ-BOEHRINGERINGELHEIM-2021-BI-124187

PATIENT
  Age: 77 Year
  Sex: Male
  Weight: 64 kg

DRUGS (9)
  1. PRADAXA [Suspect]
     Active Substance: DABIGATRAN ETEXILATE MESYLATE
     Indication: Atrial fibrillation
     Route: 048
     Dates: end: 20210810
  2. PRADAXA [Suspect]
     Active Substance: DABIGATRAN ETEXILATE MESYLATE
     Route: 048
     Dates: start: 20210823, end: 202108
  3. DIGOXIN [Concomitant]
     Active Substance: DIGOXIN
     Indication: Product used for unknown indication
  4. PROPAFENONE [Concomitant]
     Active Substance: PROPAFENONE
     Indication: Product used for unknown indication
  5. METOPROLOL TARTRATE [Concomitant]
     Active Substance: METOPROLOL TARTRATE
     Indication: Product used for unknown indication
  6. FUROSEMIDE [Concomitant]
     Active Substance: FUROSEMIDE
     Indication: Product used for unknown indication
  7. POTASSIUM CHLORIDE [Concomitant]
     Active Substance: POTASSIUM CHLORIDE
     Indication: Product used for unknown indication
  8. BECLOMETHASONE DIPROPIONATE\FORMOTEROL FUMARATE\GLYCOPYRROLATE [Concomitant]
     Active Substance: BECLOMETHASONE DIPROPIONATE\FORMOTEROL FUMARATE\GLYCOPYRROLATE
     Indication: Product used for unknown indication
  9. FENOTEROL HYDROBROMIDE\IPRATROPIUM BROMIDE [Concomitant]
     Active Substance: FENOTEROL HYDROBROMIDE\IPRATROPIUM BROMIDE
     Indication: Product used for unknown indication

REACTIONS (2)
  - Coagulation time shortened [Recovered/Resolved with Sequelae]
  - Cerebrovascular accident [Recovered/Resolved with Sequelae]

NARRATIVE: CASE EVENT DATE: 20210801
